FAERS Safety Report 5102059-5 (Version None)
Quarter: 2006Q3

REPORT INFORMATION
  Report Type: 
  Country: None (occurrence: None)
  Receive Date: 20060908
  Receipt Date: 20060831
  Transmission Date: 20061208
  Serious: Yes (Life-Threatening, Hospitalization)
  Sender: FDA-Public Use
  Company Number: 002#1#2006-00256

PATIENT
  Age: 40 Year
  Sex: Male

DRUGS (1)
  1. NIRAVAM [Suspect]
     Indication: GENERALISED ANXIETY DISORDER
     Dosage: 30 IN 1 D, ORAL
     Route: 048
     Dates: start: 20060101, end: 20060101

REACTIONS (1)
  - OVERDOSE [None]
